FAERS Safety Report 19939413 (Version 3)
Quarter: 2022Q2

REPORT INFORMATION
  Report Type: Spontaneous
  Country: US (occurrence: US)
  Receive Date: 20211011
  Receipt Date: 20220428
  Transmission Date: 20220721
  Serious: No
  Sender: FDA-Public Use
  Company Number: US-PFIZER INC-202101303942

PATIENT
  Age: 71 Year
  Sex: Female

DRUGS (1)
  1. PREGABALIN [Suspect]
     Active Substance: PREGABALIN
     Dosage: UNK

REACTIONS (5)
  - Illness [Unknown]
  - Multiple allergies [Unknown]
  - Confusional state [Unknown]
  - Eye disorder [Unknown]
  - Limb discomfort [Unknown]
